FAERS Safety Report 8375773-6 (Version None)
Quarter: 2012Q2

REPORT INFORMATION
  Report Type: 
  Country: None (occurrence: None)
  Receive Date: 20120518
  Receipt Date: 20120518
  Transmission Date: 20120825
  Serious: No
  Sender: FDA-Public Use
  Company Number: None

PATIENT
  Sex: Female

DRUGS (1)
  1. ENBREL [Suspect]
     Dosage: 50MG QWEEK SQ
     Route: 058
     Dates: start: 20120411, end: 20120502

REACTIONS (3)
  - PRURITUS [None]
  - LOCAL SWELLING [None]
  - FORMICATION [None]
